FAERS Safety Report 25658370 (Version 2)
Quarter: 2025Q3

REPORT INFORMATION
  Report Type: Spontaneous
  Country: UA (occurrence: UA)
  Receive Date: 20250808
  Receipt Date: 20250905
  Transmission Date: 20251020
  Serious: Yes (Other)
  Sender: TAKEDA
  Company Number: UA-TAKEDA-2025TUS069432

PATIENT
  Sex: Male

DRUGS (1)
  1. ENTYVIO [Suspect]
     Active Substance: VEDOLIZUMAB
     Indication: Colitis ulcerative

REACTIONS (3)
  - Colitis ulcerative [Recovered/Resolved]
  - Product availability issue [Recovered/Resolved]
  - Product dose omission issue [Recovered/Resolved]
